FAERS Safety Report 18857745 (Version 2)
Quarter: 2021Q2

REPORT INFORMATION
  Report Type: Spontaneous
  Country: US (occurrence: US)
  Receive Date: 20210208
  Receipt Date: 20210416
  Transmission Date: 20210717
  Serious: Yes (Hospitalization)
  Sender: FDA-Public Use
  Company Number: US-ROCHE-2764838

PATIENT
  Sex: Male

DRUGS (7)
  1. REMDESIVIR. [Concomitant]
     Active Substance: REMDESIVIR
  2. OFEV [Concomitant]
     Active Substance: NINTEDANIB
  3. OXYGEN. [Concomitant]
     Active Substance: OXYGEN
  4. PLASMA [Concomitant]
     Active Substance: HUMAN PLASMA
  5. ESBRIET [Suspect]
     Active Substance: PIRFENIDONE
     Indication: IDIOPATHIC PULMONARY FIBROSIS
     Dosage: THREE TIMES DAILY
     Route: 065
     Dates: start: 202009
  6. METOPROLOL. [Concomitant]
     Active Substance: METOPROLOL
  7. PREDNISONE. [Concomitant]
     Active Substance: PREDNISONE

REACTIONS (2)
  - COVID-19 pneumonia [Unknown]
  - Asthenia [Unknown]
